FAERS Safety Report 25221320 (Version 1)
Quarter: 2025Q2

REPORT INFORMATION
  Report Type: Spontaneous
  Country: GB (occurrence: GB)
  Receive Date: 20250421
  Receipt Date: 20250421
  Transmission Date: 20250717
  Serious: Yes (Other)
  Sender: B BRAUN
  Company Number: GB-B.Braun Medical Inc.-2175300

PATIENT
  Age: 69 Year

DRUGS (15)
  1. METRONIDAZOLE [Suspect]
     Active Substance: METRONIDAZOLE
     Indication: Adverse drug reaction
     Dates: start: 20250403
  2. LANSOPRAZOLE [Concomitant]
     Active Substance: LANSOPRAZOLE
  3. CALCIUM CARBONATE\CHOLECALCIFEROL [Concomitant]
     Active Substance: CALCIUM CARBONATE\CHOLECALCIFEROL
  4. LOSARTAN [Concomitant]
     Active Substance: LOSARTAN
  5. CETIRIZINE [Concomitant]
     Active Substance: CETIRIZINE HYDROCHLORIDE
  6. BETAHISTINE [Concomitant]
     Active Substance: BETAHISTINE
  7. LACTULOSE [Concomitant]
     Active Substance: LACTULOSE
  8. ATORVASTATIN [Concomitant]
     Active Substance: ATORVASTATIN
  9. BISOPROLOL. [Concomitant]
  10. RAMIPRIL [Concomitant]
     Active Substance: RAMIPRIL
  11. NITROGLYCERIN [Concomitant]
     Active Substance: NITROGLYCERIN
  12. RIVAROXABAN [Concomitant]
     Active Substance: RIVAROXABAN
  13. COCODAMOL [Concomitant]
     Active Substance: ACETAMINOPHEN\CODEINE PHOSPHATE
  14. LEVOTHYROXINE [Concomitant]
     Active Substance: LEVOTHYROXINE
  15. RANOLAZINE [Concomitant]
     Active Substance: RANOLAZINE

REACTIONS (3)
  - Swelling [Recovered/Resolved]
  - Back pain [Recovering/Resolving]
  - Rash [Recovered/Resolved]
